FAERS Safety Report 6391538-9 (Version None)
Quarter: 2009Q4

REPORT INFORMATION
  Report Type: 
  Country: None (occurrence: None)
  Receive Date: 20091007
  Receipt Date: 20090923
  Transmission Date: 20100525
  Serious: Yes (Other)
  Sender: FDA-Public Use
  Company Number: DE-PFIZER INC-2009273339

PATIENT

DRUGS (1)
  1. ZELDOX [Suspect]

REACTIONS (1)
  - TOURETTE'S DISORDER [None]
